FAERS Safety Report 8777652 (Version 2)
Quarter: 2012Q4

REPORT INFORMATION
  Report Type: Report from Study
  Country: JP (occurrence: JP)
  Receive Date: 20120912
  Receipt Date: 20121003
  Transmission Date: 20130627
  Serious: Yes (Death, Hospitalization, Other)
  Sender: FDA-Public Use
  Company Number: JP-ASTELLAS-2012US007783

PATIENT
  Age: 58 Year
  Sex: Male

DRUGS (7)
  1. ERLOTINIB TABLET [Suspect]
     Indication: ADENOCARCINOMA PANCREAS
     Dosage: 100 mg, UID/QD
     Route: 048
     Dates: start: 20120508, end: 20120513
  2. ERLOTINIB TABLET [Suspect]
     Dosage: 100 mg, UID/QD
     Route: 048
     Dates: start: 20120522, end: 20120618
  3. GEMCITABINE HYDROCHLORIDE [Concomitant]
     Indication: ADENOCARCINOMA PANCREAS
     Dosage: 1000 mg/m2, UID/QD
     Route: 041
     Dates: start: 20120508, end: 20120508
  4. GEMCITABINE HYDROCHLORIDE [Concomitant]
     Dosage: 1000 mg/m2, Weekly
     Route: 041
     Dates: start: 20120521, end: 20120604
  5. LOXOPROFEN SODIUM [Concomitant]
     Indication: PRODUCT USED FOR UNKNOWN INDICATION
     Dosage: 120 mg, UID/QD
     Route: 048
     Dates: start: 20120508, end: 20120514
  6. MUCOSTA [Concomitant]
     Indication: PRODUCT USED FOR UNKNOWN INDICATION
     Dosage: 300 mg, UID/QD
     Route: 048
     Dates: start: 20120508, end: 20120514
  7. TRAMADOL HYDROCHLORIDE [Concomitant]
     Indication: PRODUCT USED FOR UNKNOWN INDICATION
     Dosage: 100 mg, UID/QD
     Route: 048
     Dates: start: 20120514, end: 20120703

REACTIONS (4)
  - Adenocarcinoma pancreas [Fatal]
  - Gastric haemorrhage [Recovered/Resolved]
  - Gastric haemorrhage [Not Recovered/Not Resolved]
  - Shock [Unknown]
